FAERS Safety Report 5512496-2 (Version None)
Quarter: 2007Q4

REPORT INFORMATION
  Report Type: 
  Country: None (occurrence: None)
  Receive Date: 20071112
  Receipt Date: 20070523
  Transmission Date: 20080405
  Serious: No
  Sender: FDA-Public Use
  Company Number: A0652607A

PATIENT
  Age: 57 Year
  Sex: Male

DRUGS (3)
  1. AVANDAMET [Suspect]
     Dosage: 1TAB TWICE PER DAY
     Route: 048
     Dates: start: 20061101
  2. MULTI-VITAMIN [Concomitant]
  3. UNKNOWN MEDICATION [Concomitant]
     Indication: ROSACEA

REACTIONS (2)
  - COUGH [None]
  - DYSPNOEA [None]
